FAERS Safety Report 5666878-9 (Version None)
Quarter: 2008Q1

REPORT INFORMATION
  Report Type: 
  Country: None (occurrence: None)
  Receive Date: 20080315
  Receipt Date: 20080103
  Transmission Date: 20080703
  Serious: No
  Sender: FDA-Public Use
  Company Number: US-ABBOTT-08P-163-0432346-00

PATIENT
  Sex: Male
  Weight: 72.64 kg

DRUGS (6)
  1. HUMIRA [Suspect]
     Indication: RHEUMATOID ARTHRITIS
     Route: 058
     Dates: start: 20071001, end: 20071201
  2. HUMIRA [Suspect]
     Dates: start: 20080103
  3. SERTRALINE HYDROCHLORIDE [Concomitant]
     Indication: DRUG USE FOR UNKNOWN INDICATION
     Route: 048
  4. LEFLUNOMIDE [Concomitant]
     Indication: RHEUMATOID ARTHRITIS
     Route: 048
  5. ZITHROMAX [Concomitant]
     Indication: NASOPHARYNGITIS
     Route: 048
     Dates: start: 20071217
  6. PREDNISONE [Concomitant]
     Indication: RHEUMATOID ARTHRITIS
     Route: 048
     Dates: start: 20071217

REACTIONS (2)
  - NASOPHARYNGITIS [None]
  - RHEUMATOID ARTHRITIS [None]
